FAERS Safety Report 8823327 (Version 2)
Quarter: 2012Q4

REPORT INFORMATION
  Report Type: 
  Country: JP (occurrence: JP)
  Receive Date: 20121003
  Receipt Date: 20121120
  Transmission Date: 20130627
  Serious: Yes (Other)
  Sender: FDA-Public Use
  Company Number: JP-009507513-2012SP018720

PATIENT
  Age: 56 Year
  Sex: Female
  Weight: 54 kg

DRUGS (17)
  1. PEGINTRON [Suspect]
     Indication: CHRONIC HEPATITIS C
     Dosage: 1.5 Microgram per kilogram, QW
     Route: 058
     Dates: start: 20120203, end: 20120222
  2. PEGINTRON [Suspect]
     Dosage: 0.75Microgram per kilogram, QW
     Route: 058
     Dates: start: 20120223, end: 20120405
  3. PEGINTRON [Suspect]
     Dosage: 50 Microgram, qw
     Route: 058
     Dates: start: 20120621
  4. REBETOL [Suspect]
     Indication: HEPATITIS C
     Dosage: 400 mg, QD
     Route: 048
     Dates: start: 20120203, end: 20120229
  5. REBETOL [Suspect]
     Dosage: 200 mg, QD
     Route: 048
     Dates: start: 20120301, end: 20120405
  6. REBETOL [Suspect]
     Dosage: 400 mg, qd
     Route: 048
     Dates: start: 20120621
  7. TELAVIC [Suspect]
     Indication: HEPATITIS C
     Dosage: 2250 milligrams, QD
     Route: 048
     Dates: start: 20120203, end: 20120206
  8. TELAVIC [Suspect]
     Dosage: 1500 milligrams, QD
     Route: 048
     Dates: start: 20120207, end: 20120314
  9. TELAVIC [Suspect]
     Dosage: 750 mg, QD
     Route: 048
     Dates: start: 20120315, end: 20120405
  10. LOXOPROFEN [Concomitant]
     Dosage: 60 mg, PRN
     Route: 048
     Dates: start: 20120203
  11. PROCHLORPERAZINE [Concomitant]
     Dosage: UPDATE (22MAY2012)
     Route: 048
     Dates: start: 20120207, end: 20120222
  12. NAUZELIN [Concomitant]
     Dosage: UPDATE (22MAY2012)
     Route: 048
     Dates: start: 20120209, end: 20120222
  13. PREDONINE [Concomitant]
     Dosage: UPDATE (22MAY2012)
     Route: 047
     Dates: start: 20120211
  14. ALLEGRA [Concomitant]
     Dosage: UPDATE (22MAY2012)
     Route: 048
     Dates: start: 20120212
  15. EURAX-H [Concomitant]
     Dosage: UPDATE (22MAY2012)
     Route: 065
     Dates: start: 20120212
  16. ALLEGRA [Concomitant]
     Dosage: UPDATE (22MAY2012): ITCHING
     Route: 065
     Dates: start: 20120322, end: 20120328
  17. INTAL [Concomitant]
     Dosage: UPDATE (22MAY2012): ITCHING IN CONJUNCTIVA
     Route: 065
     Dates: start: 20120322, end: 20120328

REACTIONS (2)
  - Platelet count decreased [Not Recovered/Not Resolved]
  - Anaemia [Not Recovered/Not Resolved]
